FAERS Safety Report 8922488 (Version 1)
Quarter: 2012Q4

REPORT INFORMATION
  Report Type: 
  Country: US (occurrence: US)
  Receive Date: 20121126
  Receipt Date: 20121126
  Transmission Date: 20130627
  Serious: Yes (Other)
  Sender: FDA-Public Use
  Company Number: US-BRISTOL-MYERS SQUIBB COMPANY-17133018

PATIENT
  Sex: Male

DRUGS (2)
  1. ERBITUX [Suspect]
     Indication: HEAD AND NECK CANCER
     Dosage: last dose was on 24Oct2012
     Dates: start: 201209
  2. BENADRYL [Concomitant]

REACTIONS (2)
  - Arrhythmia [Unknown]
  - Hypomagnesaemia [Unknown]
